FAERS Safety Report 4504723-5 (Version None)
Quarter: 2004Q4

REPORT INFORMATION
  Report Type: 
  Country: None (occurrence: None)
  Receive Date: 20040927
  Receipt Date: 20040712
  Transmission Date: 20050328
  Serious: No
  Sender: FDA-Public Use
  Company Number: USA040772381

PATIENT
  Age: 25 Year
  Sex: Male
  Weight: 75 kg

DRUGS (3)
  1. STRATTERA [Suspect]
     Indication: ATTENTION DEFICIT/HYPERACTIVITY DISORDER
     Dosage: 40 MG/3 DAY
     Dates: start: 20040501
  2. LORAZEPAM [Concomitant]
  3. ZOLOFT [Concomitant]

REACTIONS (5)
  - HEADACHE [None]
  - MIGRAINE [None]
  - NAUSEA [None]
  - PRESCRIBED OVERDOSE [None]
  - STOMACH DISCOMFORT [None]
